FAERS Safety Report 23939343 (Version 1)
Quarter: 2024Q2

REPORT INFORMATION
  Report Type: Report from Study
  Country: US (occurrence: US)
  Receive Date: 20240605
  Receipt Date: 20240605
  Transmission Date: 20240716
  Serious: Yes (Other)
  Sender: FDA-Public Use
  Company Number: US-ABBVIE-5783775

PATIENT
  Age: 54 Year
  Sex: Male

DRUGS (2)
  1. RINVOQ [Suspect]
     Active Substance: UPADACITINIB
     Indication: Dermatitis atopic
     Route: 048
     Dates: start: 20230920, end: 202405
  2. RINVOQ [Suspect]
     Active Substance: UPADACITINIB
     Indication: Dermatitis atopic
     Dosage: STOP DATE TEXT: DOSE DOUBLE EACH DAY
     Route: 048
     Dates: start: 202405

REACTIONS (2)
  - Lupus-like syndrome [Not Recovered/Not Resolved]
  - Fungal skin infection [Unknown]

NARRATIVE: CASE EVENT DATE: 20240508
